FAERS Safety Report 14281316 (Version 1)
Quarter: 2017Q4

REPORT INFORMATION
  Report Type: Spontaneous
  Country: US (occurrence: None)
  Receive Date: 20171213
  Receipt Date: 20171213
  Transmission Date: 20180321
  Serious: Yes (Hospitalization)
  Sender: FDA-Public Use
  Company Number: None

PATIENT
  Age: 72 Year
  Sex: Female
  Weight: 99.79 kg

DRUGS (3)
  1. FASLODEX [Concomitant]
     Active Substance: FULVESTRANT
  2. ZOMETA [Suspect]
     Active Substance: ZOLEDRONIC ACID
     Indication: OSTEOPENIA
     Dosage: DOSE - 4MG/5ML
     Route: 042
     Dates: start: 20170127, end: 20170324
  3. XGEVA [Suspect]
     Active Substance: DENOSUMAB
     Indication: OSTEOPENIA
     Route: 058
     Dates: start: 20170519, end: 20171005

REACTIONS (4)
  - Hypoaesthesia [None]
  - Osteonecrosis of jaw [None]
  - Facial pain [None]
  - Tooth abscess [None]

NARRATIVE: CASE EVENT DATE: 20170801
